FAERS Safety Report 23809076 (Version 3)
Quarter: 2024Q2

REPORT INFORMATION
  Report Type: Report from Study
  Country: CA (occurrence: CA)
  Receive Date: 20240502
  Receipt Date: 20240618
  Transmission Date: 20240715
  Serious: Yes (Other)
  Sender: FDA-Public Use
  Company Number: CA-JNJFOC-20240503935

PATIENT
  Age: 67 Year
  Sex: Female

DRUGS (2)
  1. SIMPONI [Suspect]
     Active Substance: GOLIMUMAB
     Indication: Ankylosing spondylitis
     Route: 058
     Dates: start: 20240416
  2. SIMPONI [Suspect]
     Active Substance: GOLIMUMAB
     Indication: Axial spondyloarthritis
     Route: 058
     Dates: start: 20240416

REACTIONS (11)
  - Vaginal infection [Not Recovered/Not Resolved]
  - Urinary tract infection [Unknown]
  - Paraesthesia [Unknown]
  - Nasal congestion [Recovering/Resolving]
  - Chest discomfort [Recovering/Resolving]
  - Anxiety [Not Recovered/Not Resolved]
  - Chest pain [Unknown]
  - Hot flush [Unknown]
  - Chills [Unknown]
  - Tremor [Unknown]
  - Limb discomfort [Unknown]

NARRATIVE: CASE EVENT DATE: 20240401
